FAERS Safety Report 5964988-X (Version None)
Quarter: 2008Q4

REPORT INFORMATION
  Report Type: 
  Country: None (occurrence: None)
  Receive Date: 20081125
  Receipt Date: 20081113
  Transmission Date: 20090506
  Serious: Yes (Hospitalization, Other)
  Sender: FDA-Public Use
  Company Number: PHEH2006US08485

PATIENT
  Sex: Female
  Weight: 82.086 kg

DRUGS (28)
  1. ZOMETA [Suspect]
     Indication: MULTIPLE MYELOMA
     Dosage: 4 MG, QMO
     Route: 042
     Dates: start: 20031024, end: 20041221
  2. AREDIA [Suspect]
     Indication: MULTIPLE MYELOMA
     Dosage: 90 MG, QMO
     Route: 042
     Dates: start: 20030805, end: 20031024
  3. FOSAMAX [Suspect]
     Dosage: 10 MG DAILY
     Dates: start: 20000101
  4. CELEBREX [Concomitant]
     Route: 048
     Dates: start: 20020101
  5. THALIDOMIDE [Concomitant]
     Dosage: 100 MG, QD
     Route: 048
     Dates: start: 20030328, end: 20030708
  6. DECADRON [Concomitant]
     Route: 048
     Dates: start: 20030328, end: 20030708
  7. VINCRISTINE [Concomitant]
     Dosage: 2 MG, IVP
     Route: 042
     Dates: start: 20030803
  8. PREDNISONE TAB [Concomitant]
     Dates: start: 20030803
  9. ALKERAN [Concomitant]
     Dosage: 10 MG, UNK
     Route: 048
     Dates: start: 20030803
  10. CYTOXAN [Concomitant]
     Dosage: 680 MG, UNK
     Route: 042
     Dates: start: 20030803
  11. CARMUSTINE [Concomitant]
     Dosage: 35 MG, UNK
     Route: 042
     Dates: start: 20030803
  12. NORVASC [Concomitant]
     Dosage: 10 MG, QD
     Route: 048
  13. ANTINEOPLASTIC AGENTS [Concomitant]
  14. ASPIRIN [Concomitant]
  15. TOPROL-XL [Concomitant]
  16. ALBUTEROL [Concomitant]
  17. PERSANTINE [Concomitant]
     Dosage: UNK, ONCE/SINGLE
     Route: 042
  18. ADVAIR HFA [Concomitant]
  19. ARANESP [Concomitant]
     Dosage: 200 MCG, EVERY 2 WEEKS
  20. VIOXX [Concomitant]
  21. ALLOPURINOL [Concomitant]
  22. DAYPRO [Concomitant]
  23. RELAFEN [Concomitant]
  24. TYLENOL (CAPLET) [Concomitant]
  25. NORVASK [Concomitant]
  26. ZESTRIL [Concomitant]
  27. REVLIMID [Concomitant]
  28. VIOKASE [Concomitant]

REACTIONS (46)
  - ANGINA PECTORIS [None]
  - BONE DEBRIDEMENT [None]
  - BONE DISORDER [None]
  - BONE FRAGMENTATION [None]
  - BREAST PAIN [None]
  - CARDIOMYOPATHY [None]
  - CATHETERISATION CARDIAC [None]
  - CHEST PAIN [None]
  - CHRONIC OBSTRUCTIVE PULMONARY DISEASE [None]
  - CORONARY ARTERY DISEASE [None]
  - DEBRIDEMENT [None]
  - DIASTOLIC DYSFUNCTION [None]
  - DISEASE PROGRESSION [None]
  - DYSPNOEA [None]
  - ECHOCARDIOGRAM [None]
  - ERYTHEMA [None]
  - GINGIVAL ERYTHEMA [None]
  - GINGIVAL INFECTION [None]
  - GINGIVAL PAIN [None]
  - HYPERMETROPIA [None]
  - HYPERTENSIVE HEART DISEASE [None]
  - INFARCTION [None]
  - MAMMOGRAM [None]
  - MULTIPLE MYELOMA [None]
  - MUSCULOSKELETAL CHEST PAIN [None]
  - MYOCARDIAL ISCHAEMIA [None]
  - NEUTROPENIA [None]
  - NUCLEAR MAGNETIC RESONANCE IMAGING [None]
  - ORAL SURGERY [None]
  - OSTEOMYELITIS [None]
  - OSTEONECROSIS [None]
  - OSTEOPENIA [None]
  - PAIN IN EXTREMITY [None]
  - PAIN IN JAW [None]
  - PATHOGEN RESISTANCE [None]
  - PRESBYOPIA [None]
  - SCAN ABNORMAL [None]
  - SCAN MYOCARDIAL PERFUSION [None]
  - SINUSITIS [None]
  - SWELLING [None]
  - TONGUE DISCOLOURATION [None]
  - TOOTH EXTRACTION [None]
  - TOOTH INFECTION [None]
  - TOOTH LOSS [None]
  - TOOTHACHE [None]
  - WOUND DRAINAGE [None]
